FAERS Safety Report 9005078 (Version 2)
Quarter: 2013Q1

REPORT INFORMATION
  Report Type: Report from Study
  Country: US (occurrence: US)
  Receive Date: 20130109
  Receipt Date: 20130315
  Transmission Date: 20140127
  Serious: Yes (Other)
  Sender: FDA-Public Use
  Company Number: US-CELGENEUS-163-21880-13010219

PATIENT
  Age: 52 Year
  Sex: Male
  Weight: 87 kg

DRUGS (5)
  1. REVLIMID [Suspect]
     Indication: PLASMA CELL MYELOMA
     Dosage: 15 MILLIGRAM
     Route: 048
     Dates: start: 20090330
  2. REVLIMID [Suspect]
     Dosage: 15 MILLIGRAM
     Route: 048
     Dates: end: 20121230
  3. CYCLOPHOSPHAMIDE [Concomitant]
     Indication: PLASMA CELL MYELOMA
     Dosage: 2 TO 4.5G/M2 OVER 2-3 HRS ON DAY 1 OR 1.5 G/M2 IV OVER 1 TO 3 HRS DAILY FOR THREE DAYS
     Route: 041
  4. MESNA [Concomitant]
     Indication: PLASMA CELL MYELOMA
     Dosage: OVER 1 HR ON DAY 1 FOLLOWED BY THE REMAINING 80% MESNA CIV OVER 23 HRS OR IN TWO DIVIDED DOSES
     Route: 041
  5. G-CSF [Concomitant]
     Indication: PLASMA CELL MYELOMA
     Dosage: 10MCG/KG/DAY BEGINNING ON DAY 5 UNTIL PERIPHERAL STEM CELL COLLECTION IS COMPLETE
     Route: 058

REACTIONS (1)
  - Salivary gland cancer [Unknown]
